FAERS Safety Report 7134698-4 (Version None)
Quarter: 2010Q4

REPORT INFORMATION
  Report Type: 
  Country: None (occurrence: None)
  Receive Date: 20101203
  Receipt Date: 20101118
  Transmission Date: 20110411
  Serious: Yes (Hospitalization, Other)
  Sender: FDA-Public Use
  Company Number: US-ROCHE-722581

PATIENT
  Sex: Male
  Weight: 73.9 kg

DRUGS (1)
  1. ACCUTANE [Suspect]
     Indication: SKIN MASS
     Route: 065
     Dates: start: 19850301

REACTIONS (6)
  - CROHN'S DISEASE [None]
  - DEPRESSION [None]
  - PYODERMA GANGRENOSUM [None]
  - SMALL INTESTINAL OBSTRUCTION [None]
  - SUICIDAL IDEATION [None]
  - SUICIDE ATTEMPT [None]
